FAERS Safety Report 7635199-7 (Version None)
Quarter: 2011Q3

REPORT INFORMATION
  Report Type: 
  Country: None (occurrence: None)
  Receive Date: 20110726
  Receipt Date: 20110718
  Transmission Date: 20111222
  Serious: Yes (Hospitalization)
  Sender: FDA-Public Use
  Company Number: US-BRISTOL-MYERS SQUIBB COMPANY-15430754

PATIENT
  Age: 72 Year
  Sex: Male
  Weight: 71 kg

DRUGS (15)
  1. CARBOPLATIN [Suspect]
     Indication: NON-SMALL CELL LUNG CANCER
     Dosage: 17SEP2010-12NOV2010(56D) INTERRUPTED12NOV2010,RESTARTED ON 03-DEC-2010,INTERRUPTED 10-DEC-2010
     Route: 042
     Dates: start: 20100917, end: 20101211
  2. SIMVASTATIN [Concomitant]
     Route: 048
  3. PLAVIX [Concomitant]
     Route: 048
  4. LISINOPRIL [Concomitant]
     Route: 048
  5. NEXIUM [Concomitant]
     Route: 048
  6. CETUXIMAB [Suspect]
     Indication: NON-SMALL CELL LUNG CANCER
     Dosage: 17SEP2010-12NOV2010(56D),INTER 12NOV10,RESTART ON 03DEC10,INTER 10DEC010 REST 11DEC10
     Route: 042
     Dates: start: 20100917
  7. DIGOXIN [Concomitant]
     Route: 048
  8. AMIODARONE HCL [Concomitant]
     Route: 048
  9. SYMBICORT [Concomitant]
     Dosage: 180MG; 1DF=1PUFF
     Route: 055
  10. GEMCITABINE [Suspect]
     Indication: NON-SMALL CELL LUNG CANCER
     Dosage: 17SEP2010-12NOV2010(56DAYS) DRUG INTERRUPTED ON 12NOV2010,RESTART 11DEC10.
     Route: 042
     Dates: start: 20100917
  11. ADVAIR DISKUS 100/50 [Concomitant]
     Dosage: ADVAIR 250/50;1DF=1PUFF
     Route: 055
  12. FUROSEMIDE [Concomitant]
     Route: 048
  13. ATENOLOL [Concomitant]
     Route: 048
  14. AMLODIPINE [Concomitant]
     Route: 065
  15. TAMSULOSIN HCL [Concomitant]
     Route: 065

REACTIONS (3)
  - CHEST PAIN [None]
  - DYSPNOEA [None]
  - PARAESTHESIA [None]
